FAERS Safety Report 13377852 (Version 2)
Quarter: 2017Q2

REPORT INFORMATION
  Report Type: Spontaneous
  Country: US (occurrence: US)
  Receive Date: 20170328
  Receipt Date: 20170420
  Transmission Date: 20170830
  Serious: Yes (Other)
  Sender: FDA-Public Use
  Company Number: US-BAYER-2017-058230

PATIENT
  Age: 26 Year
  Sex: Female

DRUGS (1)
  1. MIRENA [Suspect]
     Active Substance: LEVONORGESTREL
     Indication: CONTRACEPTION
     Dosage: 20 MCG/24HR, CONT
     Route: 015
     Dates: start: 20121120, end: 20140305

REACTIONS (6)
  - Depression [None]
  - Abdominal pain lower [None]
  - Anxiety [None]
  - Device issue [None]
  - Dyspareunia [None]
  - Device dislocation [None]

NARRATIVE: CASE EVENT DATE: 2013
